FAERS Safety Report 15546662 (Version 1)
Quarter: 2018Q4

REPORT INFORMATION
  Report Type: Spontaneous
  Country: US (occurrence: US)
  Receive Date: 20181018
  Receipt Date: 20181018
  Transmission Date: 20190205
  Serious: Yes (Other)
  Sender: FDA-Public Use
  Company Number: None

PATIENT
  Age: 12 Year
  Sex: Female
  Weight: 49.9 kg

DRUGS (2)
  1. RISPERIDONE 0.5MG [Suspect]
     Active Substance: RISPERIDONE
     Indication: BIPOLAR DISORDER
     Route: 048
     Dates: start: 201312, end: 201601
  2. RISPERIDONE 0.5MG [Suspect]
     Active Substance: RISPERIDONE
     Indication: DEPRESSION
     Route: 048
     Dates: start: 201312, end: 201601

REACTIONS (2)
  - Weight increased [None]
  - Metabolic disorder [None]

NARRATIVE: CASE EVENT DATE: 20160601
